FAERS Safety Report 12616405 (Version 1)
Quarter: 2016Q3

REPORT INFORMATION
  Report Type: Spontaneous
  Country: FR (occurrence: FR)
  Receive Date: 20160802
  Receipt Date: 20160802
  Transmission Date: 20161109
  Serious: Yes (Hospitalization, Other)
  Sender: FDA-Public Use
  Company Number: FR-ABBVIE-16P-056-1690415-00

PATIENT
  Age: 45 Year
  Sex: Male

DRUGS (13)
  1. ORBENINE [Suspect]
     Active Substance: CLOXACILLIN SODIUM
     Indication: PRODUCT USED FOR UNKNOWN INDICATION
     Route: 042
     Dates: start: 20160701
  2. ISENTRESS [Suspect]
     Active Substance: RALTEGRAVIR POTASSIUM
     Indication: PRODUCT USED FOR UNKNOWN INDICATION
     Route: 065
     Dates: start: 201501
  3. TRUVADA [Suspect]
     Active Substance: EMTRICITABINE\TENOFOVIR DISOPROXIL FUMARATE
     Indication: HIV INFECTION
     Route: 048
  4. STELARA [Suspect]
     Active Substance: USTEKINUMAB
     Indication: PRODUCT USED FOR UNKNOWN INDICATION
     Dosage: 90MG AT WEEK0, WEEK2 AND WEEK4 THEN EVERY 8 WEEKS
     Route: 065
     Dates: start: 201508, end: 20160419
  5. ORBENINE [Suspect]
     Active Substance: CLOXACILLIN SODIUM
     Route: 042
     Dates: start: 20160708, end: 20160711
  6. REMICADE [Suspect]
     Active Substance: INFLIXIMAB
     Indication: PRODUCT USED FOR UNKNOWN INDICATION
     Route: 065
     Dates: start: 2006
  7. REMICADE [Suspect]
     Active Substance: INFLIXIMAB
     Route: 065
     Dates: start: 201210
  8. NORVIR [Suspect]
     Active Substance: RITONAVIR
     Indication: HIV INFECTION
     Route: 065
  9. REMICADE [Suspect]
     Active Substance: INFLIXIMAB
     Route: 065
     Dates: start: 201301, end: 201312
  10. PREZISTA [Suspect]
     Active Substance: DARUNAVIR ETHANOLATE
     Indication: HIV INFECTION
     Route: 048
  11. REMICADE [Suspect]
     Active Substance: INFLIXIMAB
     Route: 065
     Dates: start: 201211
  12. HUMIRA [Suspect]
     Active Substance: ADALIMUMAB
     Indication: CROHN^S DISEASE
     Dosage: 160MG OF LOAD DOSE; 80MG AFTER 2 WEEKS THEN 40MG EOW
     Route: 058
     Dates: start: 201405
  13. METHOTREXATE. [Suspect]
     Active Substance: METHOTREXATE
     Indication: PRODUCT USED FOR UNKNOWN INDICATION
     Route: 058
     Dates: start: 201506, end: 20160524

REACTIONS (28)
  - Diarrhoea [Unknown]
  - Intestinal ulcer [Unknown]
  - Scrotal abscess [Unknown]
  - Colitis ulcerative [Unknown]
  - Diarrhoea [Unknown]
  - Anal abscess [Unknown]
  - Subcutaneous abscess [Unknown]
  - Stoma site abscess [Unknown]
  - Acute kidney injury [Unknown]
  - Testicular abscess [Unknown]
  - Enterocolonic fistula [Recovered/Resolved]
  - Dermatitis exfoliative [Recovered/Resolved]
  - Enterocutaneous fistula [Unknown]
  - Cytomegalovirus infection [Unknown]
  - Prostatitis [Unknown]
  - Crohn^s disease [Unknown]
  - Enterocutaneous fistula [Unknown]
  - Urethral fistula [Unknown]
  - Sepsis [Unknown]
  - Skin ulcer [Recovered/Resolved]
  - Neutropenia [Recovering/Resolving]
  - Perineal abscess [Unknown]
  - Crohn^s disease [Unknown]
  - Myalgia [Unknown]
  - Pyrexia [Unknown]
  - Dermo-hypodermitis [Unknown]
  - Thrombocytopenia [Recovering/Resolving]
  - Dermatitis exfoliative [Unknown]

NARRATIVE: CASE EVENT DATE: 2005
